FAERS Safety Report 5389537-9 (Version None)
Quarter: 2007Q3

REPORT INFORMATION
  Report Type: 
  Country: None (occurrence: None)
  Receive Date: 20070717
  Receipt Date: 20070705
  Transmission Date: 20080115
  Serious: Yes (Other)
  Sender: FDA-Public Use
  Company Number: US-PFIZER INC-2007005794

PATIENT
  Sex: Female
  Weight: 65.8 kg

DRUGS (5)
  1. CHANTIX [Suspect]
     Indication: SMOKING CESSATION THERAPY
  2. COMPAZINE [Suspect]
     Indication: NAUSEA
  3. CLONAZEPAM [Concomitant]
  4. METOCLOPRAMIDE [Concomitant]
     Indication: GASTRIC DISORDER
  5. SYNTHROID [Concomitant]
     Indication: HYPOTHYROIDISM

REACTIONS (17)
  - ABNORMAL DREAMS [None]
  - ANGER [None]
  - ANXIETY [None]
  - ASTHENIA [None]
  - BLOOD GLUCOSE INCREASED [None]
  - CONSTIPATION [None]
  - DEPRESSION [None]
  - DIARRHOEA [None]
  - DYSURIA [None]
  - HAEMATURIA [None]
  - MUSCULAR WEAKNESS [None]
  - NAUSEA [None]
  - PANIC ATTACK [None]
  - RASH MACULAR [None]
  - SOMNOLENCE [None]
  - STRESS [None]
  - VOMITING [None]
